FAERS Safety Report 11418714 (Version 1)
Quarter: 2015Q3

REPORT INFORMATION
  Report Type: Spontaneous
  Country: DE (occurrence: DE)
  Receive Date: 20150826
  Receipt Date: 20150826
  Transmission Date: 20151125
  Serious: Yes (Other)
  Sender: FDA-Public Use
  Company Number: DE-TEVA-588198GER

PATIENT
  Sex: Female

DRUGS (2)
  1. DOXORUBICIN [Suspect]
     Active Substance: DOXORUBICIN
     Indication: OVARIAN CANCER RECURRENT
     Route: 033
  2. CISPLATIN. [Suspect]
     Active Substance: CISPLATIN
     Indication: OVARIAN CANCER RECURRENT
     Route: 033

REACTIONS (1)
  - Fistula of small intestine [Unknown]
